FAERS Safety Report 8848227 (Version 1)
Quarter: 2012Q4

REPORT INFORMATION
  Report Type: Report from Study
  Country: GB (occurrence: GB)
  Receive Date: 20121018
  Receipt Date: 20121018
  Transmission Date: 20130627
  Serious: Yes (Death, Other)
  Sender: FDA-Public Use
  Company Number: GB-ABBOTT-12P-167-0889523-00

PATIENT
  Age: 79 Year
  Sex: Female
  Weight: 92 kg

DRUGS (1)
  1. HUMIRA 40 MG/ 0.8 ML PRE-FILLED SYRINGE [Suspect]
     Indication: RHEUMATOID ARTHRITIS
     Route: 058
     Dates: start: 20080315, end: 20110613

REACTIONS (3)
  - Death [Fatal]
  - Invasive ductal breast carcinoma [Recovered/Resolved with Sequelae]
  - Oestrogen receptor positive breast cancer [Recovered/Resolved with Sequelae]
